FAERS Safety Report 11995745 (Version 2)
Quarter: 2016Q3

REPORT INFORMATION
  Report Type: Spontaneous
  Country: US (occurrence: US)
  Receive Date: 20160203
  Receipt Date: 20160714
  Transmission Date: 20161109
  Serious: Yes (Disabling, Other)
  Sender: FDA-Public Use
  Company Number: US-PFIZER INC-2016059883

PATIENT
  Age: 67 Year
  Sex: Male

DRUGS (2)
  1. TESTOSTERONE CYPIONATE. [Suspect]
     Active Substance: TESTOSTERONE CYPIONATE
     Indication: HORMONE REPLACEMENT THERAPY
     Dosage: 2 ML (200 MG/ML), EVERY TWO WEEKS
  2. DEPO-TESTOSTERONE [Suspect]
     Active Substance: TESTOSTERONE CYPIONATE
     Indication: HORMONE REPLACEMENT THERAPY
     Dosage: UNK
     Dates: start: 2008

REACTIONS (7)
  - Groin pain [Unknown]
  - Testicular pain [Unknown]
  - Myocardial infarction [Unknown]
  - Loss of libido [Not Recovered/Not Resolved]
  - Testicular swelling [Unknown]
  - Back pain [Unknown]
  - Epididymal enlargement [Unknown]

NARRATIVE: CASE EVENT DATE: 201311
